FAERS Safety Report 5732621-8 (Version None)
Quarter: 2008Q2

REPORT INFORMATION
  Report Type: 
  Country: None (occurrence: None)
  Receive Date: 20080507
  Receipt Date: 20080410
  Transmission Date: 20081010
  Serious: Yes (Hospitalization)
  Sender: FDA-Public Use
  Company Number: 2411512-2008-00002

PATIENT
  Age: 57 Year
  Sex: Female
  Weight: 87.5442 kg

DRUGS (2)
  1. READICAT2 BARIUM SULFATE SUSPENSION [Suspect]
     Indication: COMPUTERISED TOMOGRAM
     Dosage: 900ML ORALLY
     Dates: start: 20080407
  2. METHYLPREDNISOLONE [Concomitant]

REACTIONS (3)
  - LYMPHADENOPATHY [None]
  - LYMPHOEDEMA [None]
  - SENSATION OF PRESSURE [None]
